FAERS Safety Report 16822791 (Version 2)
Quarter: 2019Q4

REPORT INFORMATION
  Report Type: Report from Study
  Country: US (occurrence: US)
  Receive Date: 20190918
  Receipt Date: 20191018
  Transmission Date: 20200122
  Serious: Yes (Other)
  Sender: FDA-Public Use
  Company Number: US-PFIZER INC-2019331025

PATIENT
  Age: 61 Year
  Sex: Female

DRUGS (1)
  1. XELJANZ XR [Suspect]
     Active Substance: TOFACITINIB CITRATE
     Indication: PSORIATIC ARTHROPATHY
     Dosage: 11 MG, 1X/DAY
     Route: 048
     Dates: start: 20190628, end: 20190728

REACTIONS (12)
  - Crying [Unknown]
  - Palpitations [Recovering/Resolving]
  - Chest pain [Recovered/Resolved]
  - Pre-existing condition improved [Unknown]
  - Nausea [Unknown]
  - Therapeutic response unexpected [Unknown]
  - Burning sensation [Unknown]
  - Myocardial infarction [Recovered/Resolved]
  - Withdrawal syndrome [Unknown]
  - Upper respiratory tract infection [Unknown]
  - Cholecystitis [Unknown]
  - Dyspnoea [Recovered/Resolved]

NARRATIVE: CASE EVENT DATE: 2019
